FAERS Safety Report 16734625 (Version 5)
Quarter: 2020Q3

REPORT INFORMATION
  Report Type: Report from Study
  Country: US (occurrence: US)
  Receive Date: 20190823
  Receipt Date: 20200924
  Transmission Date: 20201102
  Serious: Yes (Hospitalization, Other)
  Sender: FDA-Public Use
  Company Number: PHHY2019US194985

PATIENT
  Age: 66 Year
  Sex: Male
  Weight: 87.5 kg

DRUGS (6)
  1. ACETAMINOPHEN. [Concomitant]
     Active Substance: ACETAMINOPHEN
     Indication: PYREXIA
     Dosage: 650 MG
     Route: 065
     Dates: start: 20190817
  2. ACETAMINOPHEN. [Concomitant]
     Active Substance: ACETAMINOPHEN
     Indication: PREMEDICATION
     Dosage: 1000 MG
     Route: 065
     Dates: start: 20190816
  3. DIPHENHYDRAMINE. [Concomitant]
     Active Substance: DIPHENHYDRAMINE
     Indication: PREMEDICATION
     Route: 065
  4. KYMRIAH [Suspect]
     Active Substance: TISAGENLECLEUCEL
     Indication: DIFFUSE LARGE B-CELL LYMPHOMA
     Dosage: 2.4 X 10^8  CAR?POSITIVE VIABLE T?CELLS
     Route: 042
     Dates: start: 20190816
  5. CYCLOPHOSPHAMIDE. [Concomitant]
     Active Substance: CYCLOPHOSPHAMIDE
     Indication: CHEMOTHERAPY
     Dosage: UNK
     Route: 065
     Dates: start: 20190811, end: 20190813
  6. FLUDARABINE [Concomitant]
     Active Substance: FLUDARABINE PHOSPHATE
     Indication: CHEMOTHERAPY
     Dosage: UNK
     Route: 065
     Dates: start: 20190811, end: 20190813

REACTIONS (13)
  - Heart rate increased [Recovering/Resolving]
  - Epstein-Barr viraemia [Recovering/Resolving]
  - Out of specification test results [Unknown]
  - Lactic acidosis [Recovered/Resolved]
  - Cytokine release syndrome [Recovered/Resolved]
  - Diffuse large B-cell lymphoma [Unknown]
  - Orthostatic hypotension [Unknown]
  - Chills [Recovered/Resolved]
  - Pyrexia [Unknown]
  - Hypogammaglobulinaemia [Unknown]
  - Infusion related reaction [Not Recovered/Not Resolved]
  - Hypotension [Unknown]
  - Malignant neoplasm progression [Unknown]

NARRATIVE: CASE EVENT DATE: 20190816
